FAERS Safety Report 25466496 (Version 1)
Quarter: 2025Q2

REPORT INFORMATION
  Report Type: Spontaneous
  Country: JP (occurrence: JP)
  Receive Date: 20250623
  Receipt Date: 20250623
  Transmission Date: 20250717
  Serious: Yes (Hospitalization)
  Sender: MERCK SHARP & DOHME LLC
  Company Number: JP-009507513-2297119

PATIENT
  Age: 74 Year
  Sex: Male

DRUGS (2)
  1. PEMBROLIZUMAB [Suspect]
     Active Substance: PEMBROLIZUMAB
     Indication: Metastatic renal cell carcinoma
  2. LENVATINIB [Concomitant]
     Active Substance: LENVATINIB
     Indication: Metastatic renal cell carcinoma

REACTIONS (2)
  - Dysphagia [Unknown]
  - Immune-mediated myositis [Unknown]
